FAERS Safety Report 13267071 (Version 2)
Quarter: 2018Q2

REPORT INFORMATION
  Report Type: Report from Study
  Country: US (occurrence: US)
  Receive Date: 20170224
  Receipt Date: 20180404
  Transmission Date: 20180711
  Serious: Yes (Hospitalization, Other)
  Sender: FDA-Public Use
  Company Number: US-GILEAD-2017-0259181

PATIENT
  Age: 39 Year
  Sex: Female

DRUGS (14)
  1. FUROSEMIDE. [Concomitant]
     Active Substance: FUROSEMIDE
  2. AMBRISENTAN [Suspect]
     Active Substance: AMBRISENTAN
     Indication: PULMONARY HYPERTENSION
     Dosage: 10 MG, QD
     Route: 065
     Dates: start: 20160816
  3. ADEMPAS [Suspect]
     Active Substance: RIOCIGUAT
     Indication: PULMONARY ARTERIAL HYPERTENSION
     Dosage: 2.5 MG, TID
     Route: 065
     Dates: start: 20160816
  4. TYVASO [Concomitant]
     Active Substance: TREPROSTINIL
  5. WARFARIN [Concomitant]
     Active Substance: WARFARIN
  6. ADEMPAS [Suspect]
     Active Substance: RIOCIGUAT
     Dosage: 2 MG, TID
     Route: 065
  7. ESCITALOPRAM [Concomitant]
     Active Substance: ESCITALOPRAM OXALATE
  8. LEFLUNOMIDE. [Concomitant]
     Active Substance: LEFLUNOMIDE
  9. HYDROXYZINE [Concomitant]
     Active Substance: HYDROXYZINE HYDROCHLORIDE
  10. DIGOXIN. [Concomitant]
     Active Substance: DIGOXIN
  11. OXYGEN. [Concomitant]
     Active Substance: OXYGEN
  12. POTASSIUM [Concomitant]
     Active Substance: POTASSIUM
  13. WELLBUTRIN [Concomitant]
     Active Substance: BUPROPION HYDROCHLORIDE
  14. RESTORIL [Concomitant]
     Active Substance: TEMAZEPAM

REACTIONS (5)
  - Nasopharyngitis [Unknown]
  - Appendicectomy [Unknown]
  - Drug dose omission [Unknown]
  - Hypotension [Unknown]
  - Dyspnoea [Not Recovered/Not Resolved]

NARRATIVE: CASE EVENT DATE: 20170213
